FAERS Safety Report 5908166-9 (Version None)
Quarter: 2008Q4

REPORT INFORMATION
  Report Type: 
  Country: None (occurrence: None)
  Receive Date: 20081003
  Receipt Date: 20080919
  Transmission Date: 20090506
  Serious: Yes (Death, Life-Threatening)
  Sender: FDA-Public Use
  Company Number: JP-GENENTECH-266724

PATIENT
  Sex: Male
  Weight: 55 kg

DRUGS (4)
  1. AVASTIN [Suspect]
     Indication: RECTAL CANCER RECURRENT
     Dosage: 5 MG/KG, Q2W
     Route: 041
     Dates: start: 20080603, end: 20080618
  2. OXALIPLATIN [Suspect]
     Indication: RECTAL CANCER
     Dosage: UNK
     Route: 041
     Dates: start: 20080603, end: 20080618
  3. FLUOROURACIL [Suspect]
     Indication: RECTAL CANCER
     Dosage: UNK
     Dates: end: 20080618
  4. LEUCOVORIN CALCIUM [Suspect]
     Indication: RECTAL CANCER
     Dosage: UNK
     Route: 041
     Dates: start: 20080603, end: 20080618

REACTIONS (1)
  - BLADDER PERFORATION [None]
